FAERS Safety Report 4431830-8 (Version None)
Quarter: 2004Q3

REPORT INFORMATION
  Report Type: 
  Country: None (occurrence: None)
  Receive Date: 20040818
  Receipt Date: 20040811
  Transmission Date: 20050211
  Serious: Yes (Hospitalization, Other)
  Sender: FDA-Public Use
  Company Number: HQWYE194511AUG04

PATIENT
  Age: 85 Year
  Sex: Male

DRUGS (2)
  1. EFFEXOR [Suspect]
     Indication: DEPRESSION
     Dosage: 150 MG 1X PER 1 DAY
  2. ZYVOX [Suspect]
     Indication: INFECTION
     Dosage: 600 MG 2X PER 1 DAY
     Route: 048

REACTIONS (8)
  - AGGRESSION [None]
  - CIRCADIAN RHYTHM SLEEP DISORDER [None]
  - DEPRESSED LEVEL OF CONSCIOUSNESS [None]
  - DISORIENTATION [None]
  - DRUG INTERACTION [None]
  - HYPERTONIA [None]
  - SEROTONIN SYNDROME [None]
  - SOMNOLENCE [None]
